FAERS Safety Report 18243902 (Version 3)
Quarter: 2020Q4

REPORT INFORMATION
  Report Type: Report from Study
  Country: GB (occurrence: GB)
  Receive Date: 20200908
  Receipt Date: 20201121
  Transmission Date: 20210113
  Serious: Yes (Hospitalization, Other)
  Sender: FDA-Public Use
  Company Number: NVSC2020GB070535

PATIENT
  Age: 27 Year
  Sex: Male

DRUGS (8)
  1. OMNITROPE [Suspect]
     Active Substance: SOMATROPIN
     Indication: GROWTH HORMONE DEFICIENCY
     Dosage: UNK UNK, QD
     Route: 065
     Dates: start: 20170615
  2. OMNITROPE [Suspect]
     Active Substance: SOMATROPIN
     Dosage: 0.3 MG, QD (05/1.5 MG/ML)
     Route: 058
     Dates: start: 20170823
  3. HYDROCORTISONE. [Concomitant]
     Active Substance: HYDROCORTISONE
     Indication: ADRENOCORTICOTROPIC HORMONE DEFICIENCY
     Dosage: 20 MG, UNKNOWN
     Route: 048
     Dates: start: 201212
  4. GONASI HP [Concomitant]
     Active Substance: GONADOTROPHIN, CHORIONIC
     Indication: FOLLICLE STIMULATING HORMONE DEFICIENCY
  5. OMNITROPE [Suspect]
     Active Substance: SOMATROPIN
     Dosage: 0.8 MG, UNKNOWN(STRENGTH:5MG/1.5ML)
     Route: 058
     Dates: start: 201708
  6. LEVOTHYROXINE. [Concomitant]
     Active Substance: LEVOTHYROXINE
     Indication: BLOOD THYROID STIMULATING HORMONE DECREASED
     Dosage: 150 UG, UNKNOWN
     Route: 048
     Dates: start: 200912
  7. DESMOTABS [Concomitant]
     Active Substance: DESMOPRESSIN
     Indication: DIABETES INSIPIDUS
     Dosage: 350 UG, UNKNOWN
     Route: 048
     Dates: start: 201212
  8. GONASI HP [Concomitant]
     Active Substance: GONADOTROPHIN, CHORIONIC
     Indication: LUTEINISING HORMONE DEFICIENCY
     Dosage: 5000 UNSPECIFIED UNITS, UNKNOWN
     Route: 058
     Dates: start: 201612

REACTIONS (7)
  - Bursitis [Recovered/Resolved]
  - Arthralgia [Recovered/Resolved]
  - Cellulitis [Unknown]
  - Paternal exposure during pregnancy [Unknown]
  - Joint effusion [Recovered/Resolved]
  - Arthritis bacterial [Recovered/Resolved]
  - Joint swelling [Recovered/Resolved]

NARRATIVE: CASE EVENT DATE: 201906
